FAERS Safety Report 19645346 (Version 1)
Quarter: 2021Q3

REPORT INFORMATION
  Report Type: Other
  Country: CA (occurrence: CA)
  Receive Date: 20210802
  Receipt Date: 20210802
  Transmission Date: 20211014
  Serious: Yes (Other)
  Sender: FDA-Public Use
  Company Number: CA-APOTEX-2021AP023959

PATIENT
  Age: 74 Year
  Sex: Female

DRUGS (1)
  1. ZOLEDRONIC ACID [Suspect]
     Active Substance: ZOLEDRONIC ACID
     Indication: OSTEOPOROSIS
     Dosage: UNK (ONCE A YEAR)
     Route: 051

REACTIONS (5)
  - Neuralgia [Unknown]
  - Asthenia [Unknown]
  - Rhinorrhoea [Unknown]
  - Syncope [Unknown]
  - Vomiting [Unknown]
